FAERS Safety Report 10244079 (Version 1)
Quarter: 2014Q2

REPORT INFORMATION
  Report Type: Spontaneous
  Country: US (occurrence: US)
  Receive Date: 20140618
  Receipt Date: 20140618
  Transmission Date: 20141212
  Serious: Yes (Other)
  Sender: FDA-Public Use
  Company Number: US-PFIZER INC-2014166497

PATIENT
  Age: 64 Year
  Sex: Female
  Weight: 74.83 kg

DRUGS (4)
  1. CELEBREX [Suspect]
     Indication: RHEUMATOID ARTHRITIS
     Dosage: 400 MG (TWO CAPSULES), 1X/DAY
     Route: 048
     Dates: start: 201004
  2. CELEBREX [Suspect]
     Dosage: 200 MG, 1X/DAY
     Route: 048
  3. HYDROCODONE [Concomitant]
     Indication: PAIN
     Dosage: 325 MG, 3X/DAY
  4. CYMBALTA [Concomitant]
     Indication: DEPRESSION
     Dosage: 60 MG

REACTIONS (6)
  - Hyperthyroidism [Unknown]
  - Musculoskeletal discomfort [Unknown]
  - Musculoskeletal pain [Unknown]
  - Feeling abnormal [Unknown]
  - Arthropathy [Unknown]
  - Arthritis [Unknown]
